FAERS Safety Report 6665154-5 (Version None)
Quarter: 2010Q2

REPORT INFORMATION
  Report Type: 
  Country: None (occurrence: None)
  Receive Date: 20100402
  Receipt Date: 20100324
  Transmission Date: 20101027
  Serious: Yes (Other)
  Sender: FDA-Public Use
  Company Number: US-JNJFOC-20100306663

PATIENT
  Sex: Male
  Weight: 56.7 kg

DRUGS (6)
  1. FLEXERIL [Suspect]
     Indication: DRUG USE FOR UNKNOWN INDICATION
  2. VALIUM [Interacting]
     Indication: DRUG USE FOR UNKNOWN INDICATION
  3. DILAUDID [Interacting]
     Indication: DRUG USE FOR UNKNOWN INDICATION
  4. SKELAXIN [Interacting]
     Indication: DRUG USE FOR UNKNOWN INDICATION
  5. PERCOCET [Interacting]
     Indication: DRUG USE FOR UNKNOWN INDICATION
  6. LYRICA [Interacting]
     Indication: DRUG USE FOR UNKNOWN INDICATION

REACTIONS (2)
  - COMA [None]
  - DRUG INTERACTION [None]
